FAERS Safety Report 8340788-0 (Version None)
Quarter: 2012Q2

REPORT INFORMATION
  Report Type: 
  Country: None (occurrence: None)
  Receive Date: 20120507
  Receipt Date: 20120501
  Transmission Date: 20120825
  Serious: No
  Sender: FDA-Public Use
  Company Number: US-BIOGENIDEC-2012BI015082

PATIENT
  Age: 61 Year
  Sex: Male

DRUGS (2)
  1. AVONEX [Suspect]
  2. AVONEX [Suspect]
     Indication: MULTIPLE SCLEROSIS
     Route: 030
     Dates: start: 20120430

REACTIONS (8)
  - UPPER RESPIRATORY TRACT CONGESTION [None]
  - MUSCULAR WEAKNESS [None]
  - ASTHENIA [None]
  - BALANCE DISORDER [None]
  - FALL [None]
  - GENERAL SYMPTOM [None]
  - GAIT DISTURBANCE [None]
  - HEADACHE [None]
